APPROVED DRUG PRODUCT: RIZATRIPTAN BENZOATE
Active Ingredient: RIZATRIPTAN BENZOATE
Strength: EQ 5MG BASE
Dosage Form/Route: TABLET, ORALLY DISINTEGRATING;ORAL
Application: A203146 | Product #001 | TE Code: AB
Applicant: MACLEODS PHARMACEUTICALS LTD
Approved: Sep 19, 2014 | RLD: No | RS: No | Type: RX